FAERS Safety Report 15226668 (Version 2)
Quarter: 2018Q4

REPORT INFORMATION
  Report Type: Spontaneous
  Country: US (occurrence: US)
  Receive Date: 20180801
  Receipt Date: 20181022
  Transmission Date: 20190204
  Serious: Yes (Other)
  Sender: FDA-Public Use
  Company Number: US-SA-2018SA206778

PATIENT
  Age: 34 Year
  Sex: Female
  Weight: 68.49 kg

DRUGS (12)
  1. COMPAZINE [PROCHLORPERAZINE MALEATE] [Concomitant]
     Dosage: 10 MG, Q6H
     Route: 048
  2. TAXOTERE [Suspect]
     Active Substance: DOCETAXEL
     Indication: BREAST CANCER FEMALE
     Dosage: 139 MG, Q3W
     Route: 042
     Dates: start: 20060808, end: 20060808
  3. DEXAMETHASONE. [Concomitant]
     Active Substance: DEXAMETHASONE
     Dosage: 4 MG, BID
  4. XELODA [Concomitant]
     Active Substance: CAPECITABINE
     Dosage: 4 DF, BID
  5. ZOMETA [Concomitant]
     Active Substance: ZOLEDRONIC ACID
     Dosage: 4 MG, 1X
  6. DECADRON [Concomitant]
     Active Substance: DEXAMETHASONE
     Dosage: 4 MG, QD
     Route: 048
  7. ADRIAMYCIN [DOXORUBICIN HYDROCHLORIDE] [Concomitant]
  8. CAPECITABINE. [Concomitant]
     Active Substance: CAPECITABINE
     Dosage: 3500 MG, QD
  9. NEOSAR [Concomitant]
     Active Substance: CYCLOPHOSPHAMIDE
  10. TAXOTERE [Suspect]
     Active Substance: DOCETAXEL
     Dosage: 139 UNK, Q3W
     Route: 042
     Dates: start: 20061130, end: 20061130
  11. DARVON [BETAHISTINE MESILATE] [Concomitant]
     Dosage: 65 MG, Q4H
     Route: 048
  12. EMLA [LIDOCAINE HYDROCHLORIDE;PRILOCAINE HYDROCHLORIDE] [Concomitant]
     Route: 061

REACTIONS (2)
  - Psychological trauma [Unknown]
  - Alopecia [Recovering/Resolving]

NARRATIVE: CASE EVENT DATE: 200608
